FAERS Safety Report 18331576 (Version 1)
Quarter: 2020Q3

REPORT INFORMATION
  Report Type: Spontaneous
  Country: JP (occurrence: JP)
  Receive Date: 20200930
  Receipt Date: 20200930
  Transmission Date: 20201103
  Serious: Yes (Other)
  Sender: FDA-Public Use
  Company Number: JP-PFIZER INC-2020373576

PATIENT
  Age: 48 Year
  Sex: Female

DRUGS (3)
  1. SOLU?CORTEF [Suspect]
     Active Substance: HYDROCORTISONE SODIUM SUCCINATE
     Indication: PERIORBITAL SWELLING
     Dosage: UNK
     Route: 042
     Dates: start: 20200924
  2. GLUTATHIONE [Concomitant]
     Active Substance: GLUTATHIONE
     Dosage: UNK
     Route: 048
  3. SAIREITO [ALISMA PLANTAGO?AQUATICA VAR. ORIENT. TUBER;ATRACTYLODES LAN [Concomitant]
     Dosage: UNK
     Route: 048

REACTIONS (2)
  - Haematuria [Unknown]
  - Haematochezia [Unknown]

NARRATIVE: CASE EVENT DATE: 20200925
